FAERS Safety Report 6424023-6 (Version None)
Quarter: 2009Q4

REPORT INFORMATION
  Report Type: 
  Country: None (occurrence: None)
  Receive Date: 20091030
  Receipt Date: 20091030
  Transmission Date: 20100525
  Serious: Yes (Death, Congenital Anomaly)
  Sender: FDA-Public Use
  Company Number: None

PATIENT
  Sex: Female
  Weight: 74.3899 kg

DRUGS (3)
  1. TAMIFLU [Suspect]
     Indication: H1N1 INFLUENZA
     Dosage: 75 MG BID PO
     Route: 048
     Dates: start: 20091007, end: 20091012
  2. TAMIFLU [Suspect]
     Indication: INFLUENZA LIKE ILLNESS
     Dosage: 75 MG BID PO
     Route: 048
     Dates: start: 20091007, end: 20091012
  3. TAMIFLU [Suspect]
     Indication: PREGNANCY
     Dosage: 75 MG BID PO
     Route: 048
     Dates: start: 20091007, end: 20091012

REACTIONS (2)
  - DRUG EXPOSURE DURING PREGNANCY [None]
  - STILLBIRTH [None]
